FAERS Safety Report 7620765-5 (Version None)
Quarter: 2011Q3

REPORT INFORMATION
  Report Type: 
  Country: None (occurrence: None)
  Receive Date: 20110719
  Receipt Date: 20110707
  Transmission Date: 20111222
  Serious: Yes (Other)
  Sender: FDA-Public Use
  Company Number: PHHY2011PL60845

PATIENT
  Age: 12 Year
  Sex: Female

DRUGS (4)
  1. AZATHIOPRINE [Concomitant]
     Indication: NEPHROTIC SYNDROME
  2. CYCLOSPORINE [Interacting]
     Indication: NEPHROTIC SYNDROME
  3. CLARITHROMYCIN [Suspect]
     Indication: BRONCHITIS
  4. PREDNISONE [Concomitant]
     Indication: NEPHROTIC SYNDROME

REACTIONS (8)
  - NEPHROTIC SYNDROME [None]
  - RALES [None]
  - GENERALISED OEDEMA [None]
  - DRUG INTERACTION [None]
  - ALBUMINURIA [None]
  - CHEMOTHERAPEUTIC DRUG LEVEL ABOVE THERAPEUTIC [None]
  - RENAL FAILURE ACUTE [None]
  - RESPIRATORY TRACT INFECTION [None]
